FAERS Safety Report 9104161 (Version 2)
Quarter: 2013Q1

REPORT INFORMATION
  Report Type: Spontaneous
  Country: BR (occurrence: BR)
  Receive Date: 20130219
  Receipt Date: 20130312
  Transmission Date: 20140127
  Serious: Yes (Hospitalization, Other)
  Sender: FDA-Public Use
  Company Number: PHHY2013BR012866

PATIENT
  Sex: Female
  Weight: 130 kg

DRUGS (5)
  1. GILENYA [Suspect]
     Indication: MULTIPLE SCLEROSIS
     Dosage: 0.5 MG, QD
     Route: 048
     Dates: start: 201212, end: 20130205
  2. FLUOXETINA [Concomitant]
     Indication: FATIGUE
     Dosage: 1 DF, QD
     Dates: start: 2010
  3. MANTIDAN [Concomitant]
     Dosage: 1 DF, QD
  4. TOPIRAMATE [Concomitant]
     Dates: start: 2010
  5. DAFLON                             /01026201/ [Concomitant]
     Dates: start: 2008

REACTIONS (5)
  - Muscle spasticity [Not Recovered/Not Resolved]
  - Musculoskeletal stiffness [Not Recovered/Not Resolved]
  - Gait disturbance [Not Recovered/Not Resolved]
  - Sensory disturbance [Recovering/Resolving]
  - Asthenia [Unknown]
